FAERS Safety Report 5894576-5 (Version None)
Quarter: 2008Q3

REPORT INFORMATION
  Report Type: 
  Country: None (occurrence: None)
  Receive Date: 20080924
  Receipt Date: 20080918
  Transmission Date: 20090109
  Serious: Yes (Death)
  Sender: FDA-Public Use
  Company Number: JP-WYE-H05842108

PATIENT
  Age: 76 Year
  Sex: Male

DRUGS (1)
  1. TAZOCIN [Suspect]
     Indication: SEPSIS
     Route: 041
     Dates: start: 20080901, end: 20080901

REACTIONS (2)
  - ANAPHYLACTIC SHOCK [None]
  - CARDIO-RESPIRATORY ARREST [None]
